FAERS Safety Report 5128913-6 (Version None)
Quarter: 2006Q4

REPORT INFORMATION
  Report Type: 
  Country: None (occurrence: None)
  Receive Date: 20061011
  Receipt Date: 20060925
  Transmission Date: 20070319
  Serious: Yes (Hospitalization)
  Sender: FDA-Public Use
  Company Number: US200609006181

PATIENT
  Age: 53 Year
  Sex: Male

DRUGS (12)
  1. HUMULIN R [Suspect]
     Indication: DIABETES MELLITUS NON-INSULIN-DEPENDENT
     Dates: start: 19960101
  2. HUMULIN N [Suspect]
     Indication: DIABETES MELLITUS NON-INSULIN-DEPENDENT
     Dates: start: 19960101, end: 20051001
  3. METOPROLOL TARTRATE [Concomitant]
  4. DEPAKOTE [Concomitant]
  5. LIPITOR [Concomitant]
  6. ZETIA [Concomitant]
  7. HYDROXYUREA [Concomitant]
  8. FEXOFENADINE HYDROCHLORIDE [Concomitant]
  9. ACCOLATE /FIN/ (ZAFIRLUKAST) [Concomitant]
  10. ACTOS /CAN/ (PIOGLITAZONE HYDROCHLORIDE) [Concomitant]
  11. AMBIEN [Concomitant]
  12. LANTUS [Concomitant]

REACTIONS (7)
  - BONE PAIN [None]
  - CONTUSION [None]
  - INFECTION [None]
  - OEDEMA PERIPHERAL [None]
  - PAIN IN EXTREMITY [None]
  - RASH [None]
  - RENAL FAILURE [None]
